FAERS Safety Report 13433265 (Version 1)
Quarter: 2017Q2

REPORT INFORMATION
  Report Type: Spontaneous
  Country: CH (occurrence: CH)
  Receive Date: 20170412
  Receipt Date: 20170412
  Transmission Date: 20170830
  Serious: Yes (Other)
  Sender: FDA-Public Use
  Company Number: CH-TEVA-757706ISR

PATIENT
  Sex: Male

DRUGS (1)
  1. AMOXI -MEPHA 1000 LACTAB [Suspect]
     Active Substance: AMOXICILLIN
     Indication: PRODUCT USED FOR UNKNOWN INDICATION
     Dates: start: 201702, end: 201702

REACTIONS (9)
  - Diarrhoea [Recovering/Resolving]
  - Disorientation [Recovering/Resolving]
  - Melanocytic naevus [Unknown]
  - Hypoaesthesia [Recovering/Resolving]
  - Dizziness [None]
  - Muscle spasms [None]
  - Muscle spasms [Recovering/Resolving]
  - Speech disorder [Recovering/Resolving]
  - Gait disturbance [Recovering/Resolving]

NARRATIVE: CASE EVENT DATE: 201702
